FAERS Safety Report 23208648 (Version 4)
Quarter: 2024Q1

REPORT INFORMATION
  Report Type: Spontaneous
  Country: US (occurrence: US)
  Receive Date: 20231121
  Receipt Date: 20240122
  Transmission Date: 20240410
  Serious: Yes (Other)
  Sender: FDA-Public Use
  Company Number: US-MLMSERVICE-20231107-4645165-1

PATIENT
  Age: 26 Day
  Sex: Female
  Weight: 0.98 kg

DRUGS (9)
  1. LEVETIRACETAM [Suspect]
     Active Substance: LEVETIRACETAM
     Indication: Neonatal seizure
     Dosage: UNK UNK, ONCE A DAY
     Route: 042
  2. LEVETIRACETAM [Suspect]
     Active Substance: LEVETIRACETAM
     Dosage: 60 MILLIGRAM/KILOGRAM, DIVIDED TWICE DAILY INSTEAD
     Route: 042
  3. LEVETIRACETAM [Suspect]
     Active Substance: LEVETIRACETAM
     Dosage: 100 MILLIGRAM/KILOGRAM, ONCE A DAY
     Route: 042
  4. PHENYTOIN [Suspect]
     Active Substance: PHENYTOIN
     Indication: Neonatal seizure
     Dosage: UNK, ONCE A DAY
     Route: 042
  5. LACOSAMIDE [Suspect]
     Active Substance: LACOSAMIDE
     Indication: Seizure
     Dosage: UNK
     Route: 065
  6. PHENOBARBITAL [Suspect]
     Active Substance: PHENOBARBITAL
     Indication: Neonatal seizure
     Dosage: UNK, ONCE A DAY
     Route: 042
  7. PHENOBARBITAL [Suspect]
     Active Substance: PHENOBARBITAL
     Dosage: 2 MILLIGRAM/KILOGRAM, TWO TIMES A DAY
     Route: 042
  8. PHENOBARBITAL [Suspect]
     Active Substance: PHENOBARBITAL
     Dosage: 6 MILLIGRAM/KILOGRAM, ONCE A DAY, 6 MG/KG/DAY DIVIDED TWICE DAILY
     Route: 042
  9. FOSPHENYTOIN [Suspect]
     Active Substance: FOSPHENYTOIN
     Indication: Neonatal seizure
     Dosage: 6 MG/KG DIVIDED TWICE DAILY
     Route: 042

REACTIONS (4)
  - Atrioventricular block second degree [Unknown]
  - Cardiac arrest [Unknown]
  - Electrolyte imbalance [Unknown]
  - Intraventricular haemorrhage neonatal [Unknown]
